FAERS Safety Report 24361969 (Version 1)
Quarter: 2024Q3

REPORT INFORMATION
  Report Type: Spontaneous
  Country: US (occurrence: None)
  Receive Date: 20240924
  Receipt Date: 20240924
  Transmission Date: 20241017
  Serious: Yes (unspecified)
  Sender: Public
  Company Number: None

PATIENT
  Age: 75 Year
  Sex: Female
  Weight: 58.5 kg

DRUGS (11)
  1. MOTEGRITY [Suspect]
     Active Substance: PRUCALOPRIDE SUCCINATE
     Indication: Constipation
     Dosage: OTHER QUANTITY : 30 TABLET(S);?
     Route: 048
     Dates: start: 20240801, end: 20240919
  2. CYMBALTA [Concomitant]
     Active Substance: DULOXETINE HYDROCHLORIDE
  3. TRAZODONE [Concomitant]
     Active Substance: TRAZODONE HYDROCHLORIDE
  4. HYDROCHLOROTHIAZIDE\LISINOPRIL [Concomitant]
     Active Substance: HYDROCHLOROTHIAZIDE\LISINOPRIL
  5. GABAPENTIN [Concomitant]
     Active Substance: GABAPENTIN
  6. GEMTESA [Concomitant]
     Active Substance: VIBEGRON
  7. VITAMIN D NOS [Concomitant]
     Active Substance: CHOLECALCIFEROL\ERGOCALCIFEROL
  8. SIMETHICONE (DIMETHICONE) [Concomitant]
     Active Substance: DIMETHICONE
  9. ALKA-SELTZER [Concomitant]
     Active Substance: ANHYDROUS CITRIC ACID\ASPIRIN\SODIUM BICARBONATE
  10. ACETAMINOPHEN [Concomitant]
     Active Substance: ACETAMINOPHEN
  11. HERBALS\TURMERIC [Concomitant]
     Active Substance: HERBALS\TURMERIC

REACTIONS (7)
  - Personality change [None]
  - Screaming [None]
  - Crying [None]
  - Verbal abuse [None]
  - Thinking abnormal [None]
  - Fear [None]
  - Therapy cessation [None]

NARRATIVE: CASE EVENT DATE: 20240919
